FAERS Safety Report 7092718-X (Version None)
Quarter: 2010Q4

REPORT INFORMATION
  Report Type: 
  Country: None (occurrence: None)
  Receive Date: 20101101
  Receipt Date: 20101026
  Transmission Date: 20110411
  Serious: Yes (Hospitalization)
  Sender: FDA-Public Use
  Company Number: 2010SP054332

PATIENT
  Age: 27 Year
  Sex: Male

DRUGS (18)
  1. MIRTAZAPINE [Suspect]
     Indication: DEPRESSION
     Dosage: SEE IMAGE
     Route: 048
     Dates: start: 20100514, end: 20100607
  2. MIRTAZAPINE [Suspect]
     Indication: DEPRESSIVE SYMPTOM
     Dosage: SEE IMAGE
     Route: 048
     Dates: start: 20100514, end: 20100607
  3. MIRTAZAPINE [Suspect]
     Indication: DEPRESSION
     Dosage: SEE IMAGE
     Route: 048
     Dates: start: 20100608, end: 20100624
  4. MIRTAZAPINE [Suspect]
     Indication: DEPRESSIVE SYMPTOM
     Dosage: SEE IMAGE
     Route: 048
     Dates: start: 20100608, end: 20100624
  5. MIRTAZAPINE [Suspect]
     Indication: DEPRESSION
     Dosage: SEE IMAGE
     Route: 048
     Dates: start: 20100625, end: 20100708
  6. MIRTAZAPINE [Suspect]
     Indication: DEPRESSIVE SYMPTOM
     Dosage: SEE IMAGE
     Route: 048
     Dates: start: 20100625, end: 20100708
  7. MIRTAZAPINE [Suspect]
     Indication: DEPRESSION
     Dosage: SEE IMAGE
     Route: 048
     Dates: start: 20100725, end: 20100729
  8. MIRTAZAPINE [Suspect]
     Indication: DEPRESSIVE SYMPTOM
     Dosage: SEE IMAGE
     Route: 048
     Dates: start: 20100725, end: 20100729
  9. MIRTAZAPINE [Suspect]
     Indication: DEPRESSION
     Dosage: SEE IMAGE
     Route: 048
     Dates: start: 20100730, end: 20100819
  10. MIRTAZAPINE [Suspect]
     Indication: DEPRESSIVE SYMPTOM
     Dosage: SEE IMAGE
     Route: 048
     Dates: start: 20100730, end: 20100819
  11. MIRTAZAPINE [Suspect]
     Indication: DEPRESSION
     Dosage: SEE IMAGE
     Route: 048
     Dates: start: 20100820, end: 20100923
  12. MIRTAZAPINE [Suspect]
     Indication: DEPRESSIVE SYMPTOM
     Dosage: SEE IMAGE
     Route: 048
     Dates: start: 20100820, end: 20100923
  13. MIRTAZAPINE [Suspect]
     Indication: DEPRESSION
     Dosage: SEE IMAGE
     Route: 048
     Dates: start: 20100924
  14. MIRTAZAPINE [Suspect]
     Indication: DEPRESSIVE SYMPTOM
     Dosage: SEE IMAGE
     Route: 048
     Dates: start: 20100924
  15. OLANZAPINE [Concomitant]
  16. QUETIAPINE FUMARATE [Concomitant]
  17. ESTAZOLAM [Concomitant]
  18. MIANSERIN HYDROCHLORIDE [Concomitant]

REACTIONS (1)
  - CEREBRAL INFARCTION [None]
